FAERS Safety Report 8836347 (Version 2)
Quarter: 2012Q4

REPORT INFORMATION
  Report Type: 
  Country: US (occurrence: US)
  Receive Date: 20121011
  Receipt Date: 20121213
  Transmission Date: 20130627
  Serious: No
  Sender: FDA-Public Use
  Company Number: US-ASTRAZENECA-2012SE75964

PATIENT
  Age: 80 Year
  Sex: Male

DRUGS (2)
  1. SYMBICORT PMDI [Suspect]
     Dosage: 80/4.5 mcg, TWO PUFFS TWO TIMES A DAY
     Route: 055
  2. NEXIUM [Suspect]
     Route: 048

REACTIONS (3)
  - Erosive oesophagitis [Unknown]
  - Drug dose omission [Unknown]
  - Off label use [Unknown]
